FAERS Safety Report 6164217-0 (Version None)
Quarter: 2009Q2

REPORT INFORMATION
  Report Type: 
  Country: None (occurrence: None)
  Receive Date: 20090422
  Receipt Date: 20090417
  Transmission Date: 20091009
  Serious: Yes (Death, Other)
  Sender: FDA-Public Use
  Company Number: PHHY2009NL14628

PATIENT
  Age: 83 Year
  Sex: Female

DRUGS (2)
  1. IMATINIB MESYLATE [Suspect]
     Indication: GASTROINTESTINAL STROMAL TUMOUR
  2. INSULIN [Concomitant]

REACTIONS (2)
  - DISEASE PROGRESSION [None]
  - HYPOGLYCAEMIA [None]
